FAERS Safety Report 18131059 (Version 1)
Quarter: 2020Q3

REPORT INFORMATION
  Report Type: Spontaneous
  Country: US (occurrence: US)
  Receive Date: 20200810
  Receipt Date: 20200810
  Transmission Date: 20201103
  Serious: Yes (Other)
  Sender: FDA-Public Use
  Company Number: US-INDIVIOR EUROPE LIMITED-INDV-125832-2020

PATIENT
  Sex: Female

DRUGS (1)
  1. SUBOXONE [Suspect]
     Active Substance: BUPRENORPHINE HYDROCHLORIDE\NALOXONE HYDROCHLORIDE
     Indication: PRODUCT USED FOR UNKNOWN INDICATION
     Dosage: UNK
     Route: 065

REACTIONS (5)
  - Seizure [Unknown]
  - Hypersensitivity [Not Recovered/Not Resolved]
  - Sensation of foreign body [Unknown]
  - Musculoskeletal discomfort [Unknown]
  - Paraesthesia [Unknown]
